FAERS Safety Report 15801529 (Version 2)
Quarter: 2022Q4

REPORT INFORMATION
  Report Type: Report from Study
  Country: US (occurrence: US)
  Receive Date: 20190109
  Receipt Date: 20221115
  Transmission Date: 20230112
  Serious: Yes (Congenital Anomaly)
  Sender: FDA-Public Use
  Company Number: US-MYLANLABS-2019M1001289

PATIENT
  Age: 11 Year

DRUGS (2)
  1. CISPLATIN [Suspect]
     Active Substance: CISPLATIN
     Indication: Ovarian cancer
     Dosage: 40 MILLIGRAM/SQ. METER, CYCLE; 4 CYCLES
     Route: 064
  2. PACLITAXEL [Suspect]
     Active Substance: PACLITAXEL
     Indication: Ovarian cancer
     Dosage: 80 MILLIGRAM/SQ. METER, CYCLE; 4 CYCLES
     Route: 064

REACTIONS (2)
  - Deafness [Unknown]
  - Foetal exposure during pregnancy [Unknown]
